FAERS Safety Report 11654706 (Version 1)
Quarter: 2015Q4

REPORT INFORMATION
  Report Type: Spontaneous
  Country: None (occurrence: None)
  Receive Date: 20151022
  Receipt Date: 20151022
  Transmission Date: 20160304
  Serious: No
  Sender: FDA-Public Use
  Company Number: None

PATIENT
  Age: 67 Year
  Sex: Female
  Weight: 81.65 kg

DRUGS (6)
  1. SIMPONI ARIA [Suspect]
     Active Substance: GOLIMUMAB
     Indication: RHEUMATOID ARTHRITIS
     Dosage: INFUSION EVERY 8 WEEKS EVERY 8 WEEKS INFUSION
     Dates: start: 20150115, end: 20150518
  2. ACTEMRA (INFUSION) [Concomitant]
  3. SYNTHROID [Concomitant]
     Active Substance: LEVOTHYROXINE SODIUM
  4. ZOLEDRONIC ACID (INFUSION) [Concomitant]
  5. VITAMIN D-CALCIUM [Concomitant]
  6. LISINOPRIL. [Concomitant]
     Active Substance: LISINOPRIL

REACTIONS (6)
  - Skin fissures [None]
  - Pain in extremity [None]
  - Burning sensation [None]
  - Gait disturbance [None]
  - Skin exfoliation [None]
  - Dermatitis [None]

NARRATIVE: CASE EVENT DATE: 201507
